FAERS Safety Report 13954121 (Version 2)
Quarter: 2017Q3

REPORT INFORMATION
  Report Type: Report from Study
  Country: CN (occurrence: CN)
  Receive Date: 20170911
  Receipt Date: 20170921
  Transmission Date: 20171128
  Serious: Yes (Other)
  Sender: FDA-Public Use
  Company Number: CN-ROCHE-1990747

PATIENT

DRUGS (3)
  1. IRINOTECAN [Suspect]
     Active Substance: IRINOTECAN
     Indication: COLORECTAL CANCER
     Dosage: DISSOLVED IN 250 ML SALINE AT DAY 1
     Route: 042
  2. CAPECITABINE. [Suspect]
     Active Substance: CAPECITABINE
     Indication: COLORECTAL CANCER
     Dosage: SPECIFICATIONS: 50 MG/TABLET
     Route: 048
  3. OXALIPLATIN. [Suspect]
     Active Substance: OXALIPLATIN
     Indication: COLORECTAL CANCER
     Dosage: FOR 120 MIN ON D1
     Route: 042

REACTIONS (8)
  - Vomiting [Unknown]
  - Bone marrow failure [Unknown]
  - Granulocytes abnormal [Unknown]
  - Thrombocytopenia [Unknown]
  - Alopecia [Unknown]
  - Transaminases increased [Unknown]
  - Diarrhoea [Unknown]
  - Anaemia [Unknown]
